FAERS Safety Report 9136390 (Version 1)
Quarter: 2013Q1

REPORT INFORMATION
  Report Type: Spontaneous
  Country: US (occurrence: US)
  Receive Date: 20130304
  Receipt Date: 20130304
  Transmission Date: 20140127
  Serious: No
  Sender: FDA-Public Use
  Company Number: US-ABBOTT-12P-163-0978949-00

PATIENT
  Sex: Male
  Weight: 99.88 kg

DRUGS (4)
  1. ANDROGEL [Suspect]
     Indication: ASTHENIA
     Dates: end: 2012
  2. ANDROGEL [Suspect]
     Indication: ASTHENIA
     Dosage: 2 PUMPS PER DAY
     Dates: start: 201208
  3. BENICAR [Concomitant]
     Indication: PRODUCT USED FOR UNKNOWN INDICATION
  4. LIPITOR [Concomitant]
     Indication: PRODUCT USED FOR UNKNOWN INDICATION

REACTIONS (8)
  - Off label use [Not Recovered/Not Resolved]
  - Erectile dysfunction [Not Recovered/Not Resolved]
  - Male orgasmic disorder [Not Recovered/Not Resolved]
  - Sensory disturbance [Not Recovered/Not Resolved]
  - Semen discolouration [Not Recovered/Not Resolved]
  - Abdominal pain upper [Not Recovered/Not Resolved]
  - Nasopharyngitis [Recovered/Resolved]
  - Ear discomfort [Unknown]
